FAERS Safety Report 9932569 (Version 1)
Quarter: 2014Q1

REPORT INFORMATION
  Report Type: Spontaneous
  Country: US (occurrence: US)
  Receive Date: 20140228
  Receipt Date: 20140228
  Transmission Date: 20141002
  Serious: Yes (Other)
  Sender: FDA-Public Use
  Company Number: US-GLAXOSMITHKLINE-A1021198A

PATIENT
  Age: 23 Year
  Sex: Female
  Weight: 79.5 kg

DRUGS (1)
  1. LAMICTAL [Suspect]
     Indication: PRODUCT USED FOR UNKNOWN INDICATION
     Dosage: 200MG UNKNOWN
     Dates: start: 20110908

REACTIONS (2)
  - Convulsion [Recovered/Resolved]
  - Aphasia [Recovered/Resolved]
